FAERS Safety Report 9520448 (Version 2)
Quarter: 2013Q4

REPORT INFORMATION
  Report Type: Spontaneous
  Country: US (occurrence: US)
  Receive Date: 20130912
  Receipt Date: 20131017
  Transmission Date: 20140711
  Serious: No
  Sender: FDA-Public Use
  Company Number: US-009507513-1309USA002581

PATIENT
  Age: 27 Year
  Sex: Female
  Weight: 88.44 kg

DRUGS (2)
  1. IMPLANON [Suspect]
     Indication: CONTRACEPTION
     Dosage: 1 ROD UP TO 3 YEARS, LEFT ARM
     Route: 059
     Dates: start: 20100823, end: 20130906
  2. TYLENOL [Concomitant]

REACTIONS (4)
  - Haemorrhage [Unknown]
  - Menstruation irregular [Unknown]
  - Headache [Unknown]
  - Incorrect drug administration duration [Unknown]
